FAERS Safety Report 17942467 (Version 1)
Quarter: 2020Q2

REPORT INFORMATION
  Report Type: Spontaneous
  Country: US (occurrence: US)
  Receive Date: 20200625
  Receipt Date: 20200625
  Transmission Date: 20200714
  Serious: No
  Sender: FDA-Public Use
  Company Number: US-GILEAD-2020-0475196

PATIENT
  Sex: Female

DRUGS (17)
  1. ENZYME [Concomitant]
     Active Substance: UNSPECIFIED INGREDIENT
  2. FISH OIL [Concomitant]
     Active Substance: FISH OIL
  3. SILVER NITRATE. [Concomitant]
     Active Substance: SILVER NITRATE
  4. ESTROGEL [Concomitant]
     Active Substance: ESTRADIOL
  5. VITAMIN B12 [Concomitant]
     Active Substance: CYANOCOBALAMIN
  6. VITAMIN D NOS [Concomitant]
     Active Substance: VITAMIN D NOS
  7. EYEVITE [Concomitant]
  8. LICORICE [GLYCYRRHIZA GLABRA] [Concomitant]
     Active Substance: GLYCYRRHIZA GLABRA\HERBALS
  9. LYSINE [Concomitant]
     Active Substance: LYSINE
  10. VITAMIN C [Concomitant]
     Active Substance: ASCORBIC ACID
  11. PAPAYA. [Concomitant]
     Active Substance: PAPAYA
  12. SOFOSBUVIR;VELPATASVIR [Suspect]
     Active Substance: SOFOSBUVIR\VELPATASVIR
     Indication: CHRONIC HEPATITIS C
     Dosage: 1 DOSAGE FORM, QD
     Route: 048
     Dates: start: 202005
  13. HAIR, SKIN + NAILS [BIOTIN] [Concomitant]
  14. CALCIUM + MAGNESIUM [Concomitant]
     Active Substance: CALCIUM\MAGNESIUM
  15. ECHINACEA HERB [ECHINACEA SPP.] [Concomitant]
  16. COENZYME Q10 [Concomitant]
     Active Substance: UBIDECARENONE
  17. PROBIOTICS NOS [Concomitant]
     Active Substance: PROBIOTICS NOS

REACTIONS (3)
  - Fatigue [Unknown]
  - Platelet count decreased [Unknown]
  - Dyspnoea [Unknown]
